FAERS Safety Report 6175560-3 (Version None)
Quarter: 2009Q2

REPORT INFORMATION
  Report Type: 
  Country: None (occurrence: None)
  Receive Date: 20090501
  Receipt Date: 20090430
  Transmission Date: 20091009
  Serious: Yes (Life-Threatening)
  Sender: FDA-Public Use
  Company Number: CH-JNJFOC-20090407001

PATIENT
  Age: 42 Year
  Sex: Female

DRUGS (2)
  1. HALDOL [Suspect]
     Indication: SCHIZOAFFECTIVE DISORDER
     Route: 048
  2. LEPONEX [Suspect]
     Indication: SCHIZOAFFECTIVE DISORDER
     Route: 048

REACTIONS (2)
  - ELECTROCARDIOGRAM QT PROLONGED [None]
  - MALAISE [None]
